FAERS Safety Report 15631933 (Version 5)
Quarter: 2021Q3

REPORT INFORMATION
  Report Type: Report from Study
  Country: JP (occurrence: JP)
  Receive Date: 20181119
  Receipt Date: 20210930
  Transmission Date: 20211014
  Serious: Yes (Death, Hospitalization, Other)
  Sender: FDA-Public Use
  Company Number: JP-AMGEN-JPNCT2018164538

PATIENT
  Age: 83 Year
  Sex: Male

DRUGS (36)
  1. DARBEPOETIN ALFA [Suspect]
     Active Substance: DARBEPOETIN ALFA
     Indication: MYELODYSPLASTIC SYNDROME
     Dosage: 180 MICROGRAM, Q2WK
     Route: 058
     Dates: start: 20171130, end: 20180125
  2. ASTAT [Concomitant]
     Indication: TINEA PEDIS
     Dosage: UNK
     Route: 061
     Dates: end: 20180710
  3. RINDERON [Concomitant]
     Indication: TINEA PEDIS
     Dosage: UNK
     Route: 061
     Dates: end: 20180725
  4. CEFTRIAXONE SODIUM HYDRATE [Concomitant]
     Active Substance: CEFTRIAXONE SODIUM
     Dosage: UNK
     Route: 065
     Dates: end: 20201206
  5. GENTACIN [Concomitant]
     Active Substance: GENTAMICIN SULFATE
     Indication: DERMATOPHYTOSIS OF NAIL
  6. TELMISARTAN. [Concomitant]
     Active Substance: TELMISARTAN
     Dosage: UNK
     Route: 048
  7. VESICARE [Concomitant]
     Active Substance: SOLIFENACIN SUCCINATE
     Indication: HYPERTONIC BLADDER
     Dosage: UNK
     Route: 048
     Dates: start: 20191025, end: 20201117
  8. LULICON [Concomitant]
     Active Substance: LULICONAZOLE
     Indication: TINEA PEDIS
     Dosage: UNK
     Route: 061
  9. BETANIS [Concomitant]
     Active Substance: MIRABEGRON
     Indication: HYPERTONIC BLADDER
     Dosage: UNK
     Route: 048
     Dates: start: 20191025, end: 20200123
  10. FUROSEMIDE. [Concomitant]
     Active Substance: FUROSEMIDE
     Dosage: UNK
     Route: 048
     Dates: end: 20201118
  11. FUROSEMIDE. [Concomitant]
     Active Substance: FUROSEMIDE
     Dosage: UNK
     Route: 065
     Dates: end: 20201123
  12. SPIRONOLACTONE. [Concomitant]
     Active Substance: SPIRONOLACTONE
     Dosage: UNK
     Route: 048
     Dates: end: 20201123
  13. GLAKAY [Concomitant]
     Active Substance: MENATETRENONE
     Dosage: 45 MG
     Route: 048
     Dates: end: 20201207
  14. DARBEPOETIN ALFA [Suspect]
     Active Substance: DARBEPOETIN ALFA
     Dosage: 240 MICROGRAM, Q2WK
     Route: 058
     Dates: start: 20180208, end: 20180419
  15. GENTACIN [Concomitant]
     Active Substance: GENTAMICIN SULFATE
     Indication: TINEA PEDIS
     Dosage: UNK
     Route: 061
     Dates: end: 20180716
  16. PERINDOPRIL [Concomitant]
     Active Substance: PERINDOPRIL
     Dosage: UNK
     Route: 048
     Dates: end: 20201123
  17. BISOPROLOL [Concomitant]
     Active Substance: BISOPROLOL
     Dosage: UNK
     Route: 048
     Dates: end: 20201207
  18. DARBEPOETIN ALFA [Suspect]
     Active Substance: DARBEPOETIN ALFA
     Dosage: 60 MICROGRAM, Q2WK
     Route: 058
     Dates: start: 20171101, end: 20171101
  19. TOVIAZ [Concomitant]
     Active Substance: FESOTERODINE FUMARATE
     Indication: HYPERTONIC BLADDER
     Dosage: 4 MG
     Route: 048
     Dates: end: 20191024
  20. PROPETO [Concomitant]
     Active Substance: PETROLATUM
     Indication: DRUG ERUPTION
     Dosage: UNK
     Route: 061
  21. CLENAFIN [Concomitant]
     Active Substance: EFINACONAZOLE
     Indication: DERMATOPHYTOSIS OF NAIL
  22. LULICON [Concomitant]
     Active Substance: LULICONAZOLE
     Indication: DERMATOPHYTOSIS OF NAIL
  23. TELMISARTAN. [Concomitant]
     Active Substance: TELMISARTAN
     Indication: HYPERTENSION
     Dosage: UNK
     Route: 048
  24. TELMISARTAN. [Concomitant]
     Active Substance: TELMISARTAN
     Dosage: UNK
     Route: 048
     Dates: end: 20201117
  25. DARBEPOETIN ALFA [Suspect]
     Active Substance: DARBEPOETIN ALFA
     Dosage: 240 MICROGRAM, Q2WK
     Route: 058
     Dates: start: 20180502
  26. PROPETO [Concomitant]
     Active Substance: PETROLATUM
     Indication: DRUG ERUPTION
     Dosage: UNK
     Route: 061
  27. CLENAFIN [Concomitant]
     Active Substance: EFINACONAZOLE
     Indication: DERMATOPHYTOSIS OF NAIL
     Dosage: UNK
     Route: 061
     Dates: end: 20180710
  28. LARIXIN [Concomitant]
     Indication: TINEA PEDIS
     Dosage: UNK
     Route: 048
     Dates: end: 20180718
  29. LULICON [Concomitant]
     Active Substance: LULICONAZOLE
     Indication: DERMATOPHYTOSIS OF NAIL
     Dosage: UNK
     Route: 061
  30. SAMSCA [Concomitant]
     Active Substance: TOLVAPTAN
     Dosage: UNK
     Route: 048
     Dates: end: 20201123
  31. AZOSEMIDE [Concomitant]
     Active Substance: AZOSEMIDE
     Dosage: UNK
     Route: 048
     Dates: end: 20201126
  32. DARBEPOETIN ALFA [Suspect]
     Active Substance: DARBEPOETIN ALFA
     Dosage: 120 MICROGRAM
     Route: 058
     Dates: start: 20171115, end: 20171115
  33. GLAKAY [Concomitant]
     Active Substance: MENATETRENONE
     Indication: MYELODYSPLASTIC SYNDROME
     Dosage: 45 MILLIGRAM
     Route: 048
  34. TOVIAZ [Concomitant]
     Active Substance: FESOTERODINE FUMARATE
     Indication: HYPERTONIC BLADDER
     Dosage: 4 MILLIGRAM
     Route: 048
  35. MYSER [Concomitant]
     Indication: DRUG ERUPTION
     Dosage: UNK
     Route: 061
  36. GENTACIN [Concomitant]
     Active Substance: GENTAMICIN SULFATE
     Indication: DERMATOPHYTOSIS OF NAIL

REACTIONS (3)
  - Pneumonia [Recovering/Resolving]
  - Cardiac failure congestive [Fatal]
  - Cutaneous vasculitis [Recovered/Resolved]

NARRATIVE: CASE EVENT DATE: 20180205
